FAERS Safety Report 4630327-X (Version None)
Quarter: 2005Q2

REPORT INFORMATION
  Report Type: 
  Country: None (occurrence: None)
  Receive Date: 20050406
  Receipt Date: 20050316
  Transmission Date: 20051028
  Serious: No
  Sender: FDA-Public Use
  Company Number: USA050393385

PATIENT
  Age: 27 Year
  Sex: Male
  Weight: 73 kg

DRUGS (2)
  1. STRATTERA [Suspect]
     Indication: ATTENTION DEFICIT/HYPERACTIVITY DISORDER
     Dosage: 40 MG DAY
     Dates: start: 20050101
  2. PAXIL [Concomitant]

REACTIONS (5)
  - FATIGUE [None]
  - INFLUENZA [None]
  - INSOMNIA [None]
  - PAIN [None]
  - PRURITUS [None]
